FAERS Safety Report 9802333 (Version 1)
Quarter: 2014Q1

REPORT INFORMATION
  Report Type: Spontaneous
  Country: US (occurrence: US)
  Receive Date: 20140107
  Receipt Date: 20140107
  Transmission Date: 20141002
  Serious: Yes (Disabling)
  Sender: FDA-Public Use
  Company Number: US-GE HEALTHCARE MEDICAL DIAGNOSTICS-OSCN-PR-1312S-0158

PATIENT
  Sex: Male

DRUGS (3)
  1. OMNISCAN [Suspect]
     Indication: PANCREATITIS
     Dates: start: 20000601, end: 20000601
  2. OMNISCAN [Suspect]
     Indication: RENAL FAILURE
     Dates: start: 20020328, end: 20020328
  3. OMNISCAN [Suspect]
     Indication: HYPOKALAEMIA
     Dates: start: 20020613, end: 20020613

REACTIONS (4)
  - Nephrogenic systemic fibrosis [Not Recovered/Not Resolved]
  - Burning sensation [Not Recovered/Not Resolved]
  - Pain [Not Recovered/Not Resolved]
  - Skin induration [Not Recovered/Not Resolved]
